FAERS Safety Report 17799012 (Version 1)
Quarter: 2020Q2

REPORT INFORMATION
  Report Type: Spontaneous
  Country: US (occurrence: US)
  Receive Date: 20200518
  Receipt Date: 20200518
  Transmission Date: 20200714
  Serious: No
  Sender: FDA-Public Use
  Company Number: US-SLATE RUN PHARMACEUTICALS-20US000088

PATIENT

DRUGS (2)
  1. AZITHROMYCIN USP [Suspect]
     Active Substance: AZITHROMYCIN
     Indication: PYREXIA
  2. AZITHROMYCIN USP [Suspect]
     Active Substance: AZITHROMYCIN
     Indication: COUGH
     Route: 065

REACTIONS (1)
  - Therapy non-responder [Unknown]
